FAERS Safety Report 8574525-1 (Version None)
Quarter: 2012Q3

REPORT INFORMATION
  Report Type: 
  Country: None (occurrence: None)
  Receive Date: 20120806
  Receipt Date: 20120731
  Transmission Date: 20120928
  Serious: Yes (Hospitalization)
  Sender: FDA-Public Use
  Company Number: JP-BAXTER-2012BAX008368

PATIENT
  Age: 4 Year
  Sex: Female

DRUGS (4)
  1. MERCAPTOPURINE [Suspect]
     Route: 048
     Dates: start: 20110123, end: 20110127
  2. OSELTAMIVIR [Suspect]
     Route: 048
     Dates: start: 20110201, end: 20110205
  3. CYTARABINE [Suspect]
     Route: 042
     Dates: start: 20110123, end: 20110126
  4. CYCLOPHOSPHAMIDE [Suspect]
     Route: 042
     Dates: start: 20110123, end: 20110123

REACTIONS (3)
  - PNEUMONIA BACTERIAL [None]
  - BLOOD IMMUNOGLOBULIN G DECREASED [None]
  - INFLUENZA [None]
